FAERS Safety Report 7841167-2 (Version None)
Quarter: 2011Q4

REPORT INFORMATION
  Report Type: 
  Country: None (occurrence: None)
  Receive Date: 20111025
  Receipt Date: 20111015
  Transmission Date: 20120403
  Serious: Yes (Other)
  Sender: FDA-Public Use
  Company Number: US-PAR PHARMACEUTICAL, INC-2011SCPR003296

PATIENT

DRUGS (5)
  1. LENALIDOMIDE [Suspect]
     Dosage: UNK, UNKNOWN
     Route: 065
  2. MELPHALAN HYDROCHLORIDE [Suspect]
     Indication: PRIMARY AMYLOIDOSIS
     Dosage: UNK, UNKNOWN
     Route: 065
  3. DEXAMETHASONE [Suspect]
     Indication: PRIMARY AMYLOIDOSIS
     Dosage: 40 MG, WEEKLY
     Route: 065
  4. LENALIDOMIDE [Suspect]
     Indication: PRIMARY AMYLOIDOSIS
     Dosage: 25 MG, DAILY
     Route: 065
  5. DEXAMETHASONE [Suspect]
     Dosage: UNK, UNKNOWN
     Route: 065

REACTIONS (5)
  - FATIGUE [None]
  - DRUG ERUPTION [None]
  - GASTRITIS [None]
  - DIZZINESS [None]
  - OEDEMA [None]
